FAERS Safety Report 9010598 (Version 1)
Quarter: 2013Q1

REPORT INFORMATION
  Report Type: Spontaneous
  Country: GB (occurrence: GB)
  Receive Date: 20130109
  Receipt Date: 20130109
  Transmission Date: 20140127
  Serious: Yes (Other)
  Sender: FDA-Public Use
  Company Number: GB-ASTRAZENECA-2013SE00021

PATIENT
  Age: 53 Year
  Sex: Male

DRUGS (3)
  1. EPINEPHRINE\LIDOCAINE [Suspect]
     Indication: DENTAL CARIES
     Route: 004
  2. SEPTANEST [Suspect]
     Indication: DENTAL CARIES
     Route: 004
  3. ALCOHOL [Concomitant]

REACTIONS (4)
  - Hallucination [Not Recovered/Not Resolved]
  - Paranoia [Not Recovered/Not Resolved]
  - Psychotic disorder [Not Recovered/Not Resolved]
  - Blood pressure increased [Unknown]
